FAERS Safety Report 16395378 (Version 5)
Quarter: 2019Q2

REPORT INFORMATION
  Report Type: Spontaneous
  Country: HU (occurrence: HU)
  Receive Date: 20190605
  Receipt Date: 20190627
  Transmission Date: 20190711
  Serious: Yes (Life-Threatening, Hospitalization, Other)
  Sender: FDA-Public Use
  Company Number: PHHY2019HU126017

PATIENT

DRUGS (6)
  1. ADALIMUMAB [Suspect]
     Active Substance: ADALIMUMAB
     Indication: PSORIASIS
     Route: 065
  2. METAMIZOLE [Suspect]
     Active Substance: METAMIZOLE
     Indication: PRODUCT USED FOR UNKNOWN INDICATION
     Route: 065
  3. ACETAMINOPHEN. [Suspect]
     Active Substance: ACETAMINOPHEN
     Indication: PRODUCT USED FOR UNKNOWN INDICATION
     Dosage: 1 UG
     Route: 065
  4. ACETAMINOPHEN. [Suspect]
     Active Substance: ACETAMINOPHEN
     Dosage: RECEIVED AS SELF MEDICATION BEFORE ADMISSION
     Route: 065
  5. CIPROFLOXACIN. [Suspect]
     Active Substance: CIPROFLOXACIN
     Indication: PRODUCT USED FOR UNKNOWN INDICATION
     Dosage: 1 DF, UNK
     Route: 065
  6. AZATHIOPRINE. [Suspect]
     Active Substance: AZATHIOPRINE
     Indication: CROHN^S DISEASE
     Route: 065

REACTIONS (23)
  - Thrombocytopenia [Unknown]
  - Bile duct stone [Unknown]
  - Pyrexia [Unknown]
  - Aspartate aminotransferase increased [Recovered/Resolved]
  - Alanine aminotransferase increased [Recovered/Resolved]
  - Vascular compression [Unknown]
  - Prothrombin level decreased [Unknown]
  - Lower gastrointestinal haemorrhage [Unknown]
  - Asthenia [Unknown]
  - Arterial stenosis [Unknown]
  - Bile duct obstruction [Unknown]
  - Transplant rejection [Recovered/Resolved]
  - Toxicity to various agents [Recovered/Resolved]
  - Abdominal hernia [Unknown]
  - Systemic inflammatory response syndrome [Unknown]
  - Hepatic artery flow decreased [Unknown]
  - Intra-abdominal haemorrhage [Unknown]
  - Leukopenia [Unknown]
  - Diarrhoea [Unknown]
  - Acute hepatic failure [Recovered/Resolved]
  - Hepatic encephalopathy [Recovered/Resolved]
  - Abdominal compartment syndrome [Unknown]
  - Drug-induced liver injury [Unknown]
